FAERS Safety Report 4548766-4 (Version None)
Quarter: 2005Q1

REPORT INFORMATION
  Report Type: 
  Country: None (occurrence: None)
  Receive Date: 20050107
  Receipt Date: 20050107
  Transmission Date: 20050727
  Serious: Yes (Other)
  Sender: FDA-Public Use
  Company Number: None

PATIENT
  Age: 61 Year
  Sex: Female
  Weight: 56.6996 kg

DRUGS (1)
  1. XYREM [Suspect]
     Indication: SLEEP DISORDER
     Dosage: TWO DOSES  NIGHT   ORAL
     Route: 048
     Dates: start: 20040520, end: 20040612

REACTIONS (3)
  - DRUG EFFECT DECREASED [None]
  - MAJOR DEPRESSION [None]
  - PSYCHOTIC DISORDER [None]
